FAERS Safety Report 5119745-3 (Version None)
Quarter: 2006Q4

REPORT INFORMATION
  Report Type: 
  Country: None (occurrence: None)
  Receive Date: 20061003
  Receipt Date: 20060927
  Transmission Date: 20070319
  Serious: Yes (Other)
  Sender: FDA-Public Use
  Company Number: US-GLAXOSMITHKLINE-A0621597A

PATIENT
  Age: 83 Year
  Sex: Male

DRUGS (2)
  1. CITRUCEL REGULAR SUSPENSION [Suspect]
     Indication: CONSTIPATION
     Dosage: 2.5TBS PER DAY
     Route: 048
  2. UNSPECIFIED MEDICATION [Concomitant]

REACTIONS (2)
  - BLOOD GLUCOSE INCREASED [None]
  - GLUCOSE TOLERANCE IMPAIRED [None]
